FAERS Safety Report 11223564 (Version 2)
Quarter: 2015Q3

REPORT INFORMATION
  Report Type: Spontaneous
  Country: IT (occurrence: IT)
  Receive Date: 20150628
  Receipt Date: 20150729
  Transmission Date: 20151125
  Serious: Yes (Disabling)
  Sender: FDA-Public Use
  Company Number: IT-ROCHE-1599371

PATIENT
  Age: 72 Year
  Sex: Female

DRUGS (6)
  1. MEDROL [Concomitant]
     Active Substance: METHYLPREDNISOLONE
     Dosage: 4 MG TABLETS^ 30 TABLETS
     Route: 048
  2. CRESTOR [Concomitant]
     Active Substance: ROSUVASTATIN CALCIUM
     Indication: HYPERCHOLESTEROLAEMIA
     Dosage: 28 FILM-COATED TABLETS IN A BLISTER, 10 MG
     Route: 048
  3. FOSAMAX [Concomitant]
     Active Substance: ALENDRONATE SODIUM
     Indication: OSTEOPOROSIS
     Route: 048
  4. DIBASE [Concomitant]
     Active Substance: CHOLECALCIFEROL
     Indication: VITAMIN D DEFICIENCY
     Dosage: 25,000 IU/2.5 ML 1 VIAL, 2.5 ML
     Route: 048
  5. OXYCONTIN [Concomitant]
     Active Substance: OXYCODONE HYDROCHLORIDE
     Indication: PAIN
     Dosage: 10 MG, IN A BLISTER PACK
     Route: 048
  6. MABTHERA [Suspect]
     Active Substance: RITUXIMAB
     Indication: SJOGREN^S SYNDROME
     Route: 042
     Dates: start: 20130819, end: 20150414

REACTIONS (3)
  - Herpes zoster [Recovered/Resolved with Sequelae]
  - Off label use [Unknown]
  - Post herpetic neuralgia [Recovered/Resolved with Sequelae]

NARRATIVE: CASE EVENT DATE: 20150515
